FAERS Safety Report 19008739 (Version 1)
Quarter: 2021Q1

REPORT INFORMATION
  Report Type: Spontaneous
  Country: DE (occurrence: DE)
  Receive Date: 20210316
  Receipt Date: 20210316
  Transmission Date: 20210420
  Serious: Yes (Other)
  Sender: FDA-Public Use
  Company Number: DE-SUN PHARMACEUTICAL INDUSTRIES LTD-2021RR-285811

PATIENT
  Age: 4 Year
  Sex: Female

DRUGS (8)
  1. TEMOZOLOMIDE. [Suspect]
     Active Substance: TEMOZOLOMIDE
     Indication: NEUROBLASTOMA RECURRENT
     Dosage: UNK ()
     Route: 048
     Dates: start: 201712, end: 201809
  2. IRINOTECAN HYDROCHLORIDE. [Concomitant]
     Active Substance: IRINOTECAN HYDROCHLORIDE
     Indication: METASTATIC NEOPLASM
     Dosage: UNK
     Route: 065
  3. TEMODAL [Suspect]
     Active Substance: TEMOZOLOMIDE
     Indication: METASTATIC NEOPLASM
     Dosage: UNK
     Route: 065
  4. IRINOTECAN [Suspect]
     Active Substance: IRINOTECAN
     Indication: NEUROBLASTOMA RECURRENT
     Dosage: UNK ()
     Route: 065
     Dates: start: 201712, end: 201809
  5. QARZIBA [Suspect]
     Active Substance: DINUTUXIMAB BETA
     Indication: NEUROBLASTOMA RECURRENT
     Dosage: 8 COURSES, 100 MG/M2 (BODY SURFACE AREA IN 10 DAYS, EVERY 6 WEEKS) ()
     Route: 065
     Dates: start: 201810, end: 201908
  6. NIVOLUMAB [Suspect]
     Active Substance: NIVOLUMAB
     Indication: NEUROBLASTOMA RECURRENT
     Dosage: 19 DOSES, 3 MG/KG (BODY WEIGHT EVERY 2 WEEKS) ()
     Route: 065
     Dates: start: 201810, end: 201908
  7. DINUTUXIMAB [Concomitant]
     Active Substance: DINUTUXIMAB
     Indication: METASTATIC NEOPLASM
     Dosage: UNK ()
     Route: 065
     Dates: start: 201810, end: 201908
  8. QARZIBA [Suspect]
     Active Substance: DINUTUXIMAB BETA
     Dosage: UNK ()
     Route: 065
     Dates: start: 201712, end: 201809

REACTIONS (5)
  - Product used for unknown indication [Unknown]
  - Granulocytopenia [Recovered/Resolved]
  - Urinary tract infection [Recovered/Resolved]
  - Treatment failure [Unknown]
  - Drug tolerance decreased [Unknown]

NARRATIVE: CASE EVENT DATE: 201712
